FAERS Safety Report 25040902 (Version 3)
Quarter: 2025Q2

REPORT INFORMATION
  Report Type: Spontaneous
  Country: ES (occurrence: ES)
  Receive Date: 20250305
  Receipt Date: 20250627
  Transmission Date: 20250717
  Serious: Yes (Hospitalization, Other)
  Sender: AUROBINDO
  Company Number: ES-ITALFARMACO-2025-000333

PATIENT
  Age: 44 Year
  Sex: Male

DRUGS (5)
  1. BISOPROLOL [Suspect]
     Active Substance: BISOPROLOL
     Indication: Hypertension
     Route: 065
  2. ENALAPRIL [Suspect]
     Active Substance: ENALAPRIL
     Indication: Hypertension
     Dosage: 20 MILLIGRAM, ONCE A DAY
     Route: 065
  3. BUDESONIDE [Concomitant]
     Active Substance: BUDESONIDE
     Indication: Asthma
  4. ALBUTEROL [Concomitant]
     Active Substance: ALBUTEROL
     Indication: Asthma
  5. CROMOLYN SODIUM [Concomitant]
     Active Substance: CROMOLYN SODIUM
     Indication: Asthma
     Route: 065

REACTIONS (4)
  - Asthmatic crisis [Recovered/Resolved]
  - Asthma [Recovered/Resolved]
  - Condition aggravated [Recovered/Resolved]
  - Blood pressure inadequately controlled [Unknown]
